FAERS Safety Report 9746630 (Version 3)
Quarter: 2014Q1

REPORT INFORMATION
  Report Type: Spontaneous
  Country: US (occurrence: US)
  Receive Date: 20131211
  Receipt Date: 20140210
  Transmission Date: 20141002
  Serious: No
  Sender: FDA-Public Use
  Company Number: US-PFIZER INC-2013352901

PATIENT
  Age: 58 Year
  Sex: Male
  Weight: 107.94 kg

DRUGS (5)
  1. LIPITOR [Suspect]
     Indication: BLOOD CHOLESTEROL INCREASED
     Dosage: 10 MG, 1X/DAY
     Route: 048
     Dates: start: 200907, end: 2010
  2. LITHIUM [Concomitant]
     Indication: NEUROPATHY PERIPHERAL
     Dosage: 600 MG, 2X/DAY
     Route: 048
     Dates: start: 200906
  3. FLUPHENAZINE [Concomitant]
     Indication: NEUROPATHY PERIPHERAL
     Dosage: 5 MG, 3X/DAY
     Dates: start: 200906
  4. TRIHEXYPHENIDYL [Concomitant]
     Indication: NEUROPATHY PERIPHERAL
     Dosage: 5 MG, 1X/DAY
  5. DIPHENHYDRAMINE [Concomitant]
     Dosage: 50 MG, 2X/DAY
     Dates: start: 200906

REACTIONS (4)
  - Hypertension [Unknown]
  - Headache [Not Recovered/Not Resolved]
  - Migraine [Not Recovered/Not Resolved]
  - Sleep disorder [Not Recovered/Not Resolved]
